FAERS Safety Report 24591400 (Version 1)
Quarter: 2024Q4

REPORT INFORMATION
  Report Type: Spontaneous
  Country: SE (occurrence: SE)
  Receive Date: 20241108
  Receipt Date: 20241108
  Transmission Date: 20250115
  Serious: Yes (Disabling)
  Sender: UCB
  Company Number: None

PATIENT
  Age: 32 Year
  Sex: Male
  Weight: 100 kg

DRUGS (1)
  1. BIMZELX [Suspect]
     Active Substance: BIMEKIZUMAB-BKZX
     Indication: Psoriasis
     Dosage: 320 MG (GIVEN AS 2 INJECTIONS OF 160 MG EACH) AT WEEKS 0,4,8,12,16 AND EVERY 8 WEEKS THEREAFTER. DOS
     Route: 058
     Dates: start: 20240527, end: 20240828

REACTIONS (9)
  - Eye pruritus [Unknown]
  - Fatigue [Unknown]
  - Eye swelling [Unknown]
  - Eye discharge [Unknown]
  - Alopecia areata [Recovered/Resolved with Sequelae]
  - Hair disorder [Unknown]
  - Influenza like illness [Unknown]
  - Subcutaneous abscess [Unknown]
  - Oropharyngeal pain [Unknown]

NARRATIVE: CASE EVENT DATE: 20240101
